FAERS Safety Report 6603037-7 (Version None)
Quarter: 2010Q1

REPORT INFORMATION
  Report Type: 
  Country: None (occurrence: None)
  Receive Date: 20100226
  Receipt Date: 20100120
  Transmission Date: 20100710
  Serious: Yes (Other)
  Sender: FDA-Public Use
  Company Number: US-BRISTOL-MYERS SQUIBB COMPANY-14985220

PATIENT
  Age: 58 Year
  Sex: Female

DRUGS (11)
  1. ERBITUX [Suspect]
     Indication: COLON CANCER
     Dosage: 250MG/M2/WEEKLY
     Route: 042
     Dates: start: 20090624, end: 20091125
  2. FLUOROURACIL [Suspect]
     Indication: COLON CANCER
     Dosage: GIVEN ON 23DEC09;06JAN2010.
     Route: 042
     Dates: start: 20090624
  3. FOLINIC ACID [Suspect]
     Indication: COLON CANCER
     Route: 042
     Dates: start: 20090624
  4. OXALIPLATIN [Suspect]
     Indication: COLON CANCER
     Route: 042
     Dates: start: 20090624
  5. ZOFRAN [Concomitant]
  6. EMEND [Concomitant]
  7. DECADRON [Concomitant]
  8. COMPAZINE [Concomitant]
  9. LORAZEPAM [Concomitant]
  10. PROTONIX [Concomitant]
     Dates: start: 20090819
  11. SIMETHICONE [Concomitant]
     Dates: start: 20090819

REACTIONS (2)
  - ANAL FISSURE [None]
  - STOMATITIS [None]
